FAERS Safety Report 8446871-3 (Version None)
Quarter: 2012Q2

REPORT INFORMATION
  Report Type: 
  Country: None (occurrence: None)
  Receive Date: 20120612
  Receipt Date: 20120612
  Transmission Date: 20120825
  Serious: Yes (Hospitalization)
  Sender: FDA-Public Use
  Company Number: None

PATIENT
  Sex: Male
  Weight: 74.3899 kg

DRUGS (3)
  1. PEGASYS [Suspect]
     Indication: HEPATITIS C
     Dosage: 180MCG ONCE A WEEK SUB-Q
     Route: 058
     Dates: start: 20120601, end: 20120608
  2. INCIVEK [Concomitant]
  3. RIBAVIRIN [Suspect]
     Indication: HEPATITIS C
     Dosage: 400MG BID PO
     Route: 048
     Dates: start: 20120601, end: 20120608

REACTIONS (4)
  - CHILLS [None]
  - RASH MORBILLIFORM [None]
  - BLISTER [None]
  - FEELING HOT [None]
